FAERS Safety Report 5455156-9 (Version None)
Quarter: 2007Q3

REPORT INFORMATION
  Report Type: 
  Country: None (occurrence: None)
  Receive Date: 20070913
  Receipt Date: 20070913
  Transmission Date: 20080115
  Serious: Yes (Hospitalization)
  Sender: FDA-Public Use
  Company Number: None

PATIENT
  Sex: Female
  Weight: 62.9 kg

DRUGS (3)
  1. CISPLATIN [Suspect]
     Dosage: 85 MG
  2. DOXORUBICIN HYDROCHLORIDE [Suspect]
     Dosage: 76.5 MG
  3. TAXOL [Suspect]
     Dosage: 272 MG

REACTIONS (4)
  - ASTHENIA [None]
  - DIARRHOEA [None]
  - NAUSEA [None]
  - VOMITING [None]
